FAERS Safety Report 12729846 (Version 1)
Quarter: 2016Q3

REPORT INFORMATION
  Report Type: Report from Study
  Country: US (occurrence: US)
  Receive Date: 20160909
  Receipt Date: 20160909
  Transmission Date: 20161109
  Serious: Yes (Other)
  Sender: FDA-Public Use
  Company Number: US-AMGEN-USASL2016117974

PATIENT
  Age: 74 Year
  Sex: Female

DRUGS (1)
  1. ENBREL [Suspect]
     Active Substance: ETANERCEPT
     Indication: RHEUMATOID ARTHRITIS
     Dosage: UNK
     Route: 065

REACTIONS (7)
  - Arthralgia [Unknown]
  - Pruritus [Unknown]
  - Corrective lens user [Unknown]
  - Rheumatoid arthritis [Not Recovered/Not Resolved]
  - Dry skin [Unknown]
  - Chills [Not Recovered/Not Resolved]
  - Skin discomfort [Unknown]
